FAERS Safety Report 8619487-3 (Version None)
Quarter: 2012Q3

REPORT INFORMATION
  Report Type: 
  Country: None (occurrence: None)
  Receive Date: 20120824
  Receipt Date: 20120816
  Transmission Date: 20120928
  Serious: Yes (Hospitalization)
  Sender: FDA-Public Use
  Company Number: PHHY2012AU072175

PATIENT
  Sex: Male

DRUGS (11)
  1. EZETIMIBE [Concomitant]
     Indication: HYPERCHOLESTEROLAEMIA
  2. LIPITOR [Concomitant]
     Indication: MYOCARDIAL ISCHAEMIA
     Dosage: 40 MG, UNK
     Route: 048
  3. COUMADIN [Concomitant]
     Indication: MYOCARDIAL ISCHAEMIA
     Route: 048
  4. COUMADIN [Concomitant]
     Indication: HYPERCHOLESTEROLAEMIA
  5. LIPITOR [Concomitant]
     Indication: HYPERCHOLESTEROLAEMIA
  6. NORVASC [Concomitant]
     Indication: HYPERCHOLESTEROLAEMIA
  7. RAMIPRIL [Concomitant]
     Indication: MYOCARDIAL ISCHAEMIA
     Dosage: 5 MG, UNK
     Route: 048
  8. EZETIMIBE [Concomitant]
     Indication: MYOCARDIAL ISCHAEMIA
     Dosage: 10 MG, UNK
     Route: 048
  9. NORVASC [Concomitant]
     Indication: MYOCARDIAL ISCHAEMIA
     Dosage: 5 MG, UNK
     Route: 048
  10. ZOLEDRONOC ACID [Suspect]
     Dosage: 5 MG
     Route: 042
     Dates: start: 20101012
  11. RAMIPRIL [Concomitant]
     Indication: HYPERCHOLESTEROLAEMIA

REACTIONS (1)
  - INGUINAL HERNIA [None]
